FAERS Safety Report 18423736 (Version 2)
Quarter: 2020Q4

REPORT INFORMATION
  Report Type: Spontaneous
  Country: DE (occurrence: DE)
  Receive Date: 20201024
  Receipt Date: 20201207
  Transmission Date: 20210114
  Serious: Yes (Hospitalization, Other)
  Sender: FDA-Public Use
  Company Number: NVSC2020DE283066

PATIENT
  Sex: Female

DRUGS (2)
  1. BEOVU [Suspect]
     Active Substance: BROLUCIZUMAB-DBLL
     Indication: NEOVASCULAR AGE-RELATED MACULAR DEGENERATION
     Dosage: UNK (FIRST EYE)
     Route: 031
     Dates: start: 20200915
  2. BEOVU [Suspect]
     Active Substance: BROLUCIZUMAB-DBLL
     Dosage: UNK (RIGHT EYE) SECOND BEOVU INJECTION
     Route: 031
     Dates: start: 20201006

REACTIONS (11)
  - Intraocular pressure increased [Recovered/Resolved]
  - Keratic precipitates [Unknown]
  - Eye inflammation [Unknown]
  - Keratic precipitates [Recovering/Resolving]
  - Blindness unilateral [Unknown]
  - Macular oedema [Recovered/Resolved]
  - Macular oedema [Recovering/Resolving]
  - Vision blurred [Unknown]
  - Eye irritation [Recovering/Resolving]
  - Eye inflammation [Recovered/Resolved]
  - Visual impairment [Unknown]

NARRATIVE: CASE EVENT DATE: 202010
